FAERS Safety Report 12298946 (Version 1)
Quarter: 2016Q2

REPORT INFORMATION
  Report Type: Spontaneous
  Country: US (occurrence: None)
  Receive Date: 20160422
  Receipt Date: 20160422
  Transmission Date: 20160815
  Serious: Yes (Other)
  Sender: FDA-Public Use
  Company Number: None

PATIENT
  Age: 66 Year
  Sex: Female
  Weight: 45.36 kg

DRUGS (1)
  1. VENLAFAXINE XR CAP 75MG, 75 MG ZYDUS [Suspect]
     Active Substance: VENLAFAXINE HYDROCHLORIDE
     Indication: DEPRESSION
     Dosage: 90 CAPSULE(S) ONCE A DAY TAKEN BY MOUTH
     Route: 048
     Dates: start: 20160108, end: 20160328

REACTIONS (6)
  - Agitation [None]
  - Anger [None]
  - Stress [None]
  - Product substitution issue [None]
  - Mental disorder [None]
  - Product formulation issue [None]

NARRATIVE: CASE EVENT DATE: 20160328
